FAERS Safety Report 25855339 (Version 1)
Quarter: 2025Q3

REPORT INFORMATION
  Report Type: Spontaneous
  Country: US (occurrence: US)
  Receive Date: 20250927
  Receipt Date: 20250927
  Transmission Date: 20251021
  Serious: No
  Sender: GLAXOSMITHKLINE
  Company Number: US-GSK-US2025AMR114660

PATIENT
  Sex: Male

DRUGS (1)
  1. NUCALA [Suspect]
     Active Substance: MEPOLIZUMAB
     Indication: Product used for unknown indication
     Dosage: 100 MG, Q4W
     Dates: start: 202407

REACTIONS (5)
  - Cough [Not Recovered/Not Resolved]
  - Condition aggravated [Unknown]
  - Secretion discharge [Not Recovered/Not Resolved]
  - Product dose omission issue [Unknown]
  - Therapeutic response shortened [Unknown]
